FAERS Safety Report 15577628 (Version 2)
Quarter: 2018Q4

REPORT INFORMATION
  Report Type: Spontaneous
  Country: US (occurrence: US)
  Receive Date: 20181102
  Receipt Date: 20181108
  Transmission Date: 20190205
  Serious: Yes (Other)
  Sender: FDA-Public Use
  Company Number: US-AUROBINDO-AUR-APL-2018-052716

PATIENT
  Age: 32 Year
  Sex: Male

DRUGS (1)
  1. TRIMETHOPRIM+SULFAMETHOXAZOLE [Suspect]
     Active Substance: SULFAMETHOXAZOLE\TRIMETHOPRIM
     Indication: ACNE
     Dosage: UNK
     Route: 065

REACTIONS (18)
  - Drug reaction with eosinophilia and systemic symptoms [Recovering/Resolving]
  - Retinal detachment [Unknown]
  - Vitiligo [Unknown]
  - Rash papular [Recovered/Resolved]
  - Face oedema [Unknown]
  - Insomnia [Unknown]
  - Anxiety [Unknown]
  - Alopecia universalis [Unknown]
  - Vogt-Koyanagi-Harada syndrome [Unknown]
  - Conjunctival hyperaemia [Unknown]
  - Hepatitis [Unknown]
  - Leukocytosis [Unknown]
  - Pyrexia [Unknown]
  - Basedow^s disease [Unknown]
  - Rash pruritic [Unknown]
  - Achromotrichia acquired [Unknown]
  - Scleritis [Unknown]
  - Vision blurred [Unknown]
